FAERS Safety Report 16787288 (Version 1)
Quarter: 2019Q3

REPORT INFORMATION
  Report Type: Spontaneous
  Country: US (occurrence: US)
  Receive Date: 20190909
  Receipt Date: 20190909
  Transmission Date: 20191005
  Serious: Yes (Other)
  Sender: FDA-Public Use
  Company Number: US-ELI_LILLY_AND_COMPANY-US201908014459

PATIENT
  Sex: Male

DRUGS (3)
  1. FLOMAX [MORNIFLUMATE] [Concomitant]
     Active Substance: MORNIFLUMATE
     Indication: PROSTATIC DISORDER
     Dosage: 0.4 MG, DAILY
     Route: 065
     Dates: start: 2016
  2. CIALIS [Suspect]
     Active Substance: TADALAFIL
     Indication: ERECTILE DYSFUNCTION
     Dosage: 100 MG, MONTHLY (1/M)
     Route: 065
     Dates: start: 2019
  3. VIAGRA [Suspect]
     Active Substance: SILDENAFIL CITRATE
     Indication: ERECTILE DYSFUNCTION
     Dosage: 100 MG, UNKNOWN(100 TO 50 MG TIWCE A MONTH)
     Route: 065
     Dates: start: 20110519

REACTIONS (2)
  - Malignant melanoma [Unknown]
  - Basal cell carcinoma [Recovered/Resolved]
